FAERS Safety Report 4552236-7 (Version None)
Quarter: 2004Q4

REPORT INFORMATION
  Report Type: 
  Country: None (occurrence: None)
  Receive Date: 20041217
  Receipt Date: 20041001
  Transmission Date: 20050328
  Serious: No
  Sender: FDA-Public Use
  Company Number: 2004-BP-09109BP

PATIENT
  Age: 71 Year
  Sex: Male

DRUGS (9)
  1. SPIRIVA [Suspect]
     Indication: CHRONIC OBSTRUCTIVE AIRWAYS DISEASE
     Dosage: 18 MCG (18 MCG), IH
     Dates: start: 20040901
  2. ALBUTEROL [Concomitant]
  3. IPRATROPIUM BROMIDE [Concomitant]
  4. LIPITOR [Concomitant]
  5. NEXIUM [Concomitant]
  6. XANAX [Concomitant]
  7. CARDIZEM [Concomitant]
  8. MILK OF MAGNESIA (MAGNESIUM HYDROXIDE) [Concomitant]
  9. OXYGEN (OXYGEN) [Concomitant]

REACTIONS (1)
  - CONSTIPATION [None]
